FAERS Safety Report 13763978 (Version 3)
Quarter: 2019Q2

REPORT INFORMATION
  Report Type: Spontaneous
  Country: US (occurrence: US)
  Receive Date: 20170718
  Receipt Date: 20190401
  Transmission Date: 20190711
  Serious: No
  Sender: FDA-Public Use
  Company Number: US-VANDA PHARMACEUTICALS, INC-2017TASUS001482

PATIENT
  Age: 17 Year
  Sex: Female
  Weight: 39.2 kg

DRUGS (1)
  1. HETLIOZ [Suspect]
     Active Substance: TASIMELTEON
     Indication: NON-24-HOUR SLEEP-WAKE DISORDER
     Dosage: 20 MG, QHS
     Route: 048
     Dates: start: 20170121

REACTIONS (5)
  - Fatigue [Unknown]
  - Movement disorder [Recovered/Resolved]
  - Dyssomnia [Recovering/Resolving]
  - Obstructive airways disorder [Unknown]
  - Hypersomnia [Unknown]
